FAERS Safety Report 5818117-3 (Version None)
Quarter: 2008Q3

REPORT INFORMATION
  Report Type: 
  Country: None (occurrence: None)
  Receive Date: 20080722
  Receipt Date: 20071003
  Transmission Date: 20090109
  Serious: No
  Sender: FDA-Public Use
  Company Number: US-BAYER-US-2007-037321

PATIENT
  Age: 28 Year
  Sex: Female
  Weight: 57 kg

DRUGS (6)
  1. MAGNEVIST [Suspect]
     Indication: NUCLEAR MAGNETIC RESONANCE IMAGING BRAIN
     Dosage: TOTAL DAILY DOSE: 10 ML
     Route: 042
     Dates: start: 20071002, end: 20071002
  2. LEXAPRO [Concomitant]
  3. YASMIN [Concomitant]
  4. MOTRIN [Concomitant]
  5. DARVOCET-N 100 [Concomitant]
  6. ZANTAC [Concomitant]

REACTIONS (1)
  - URTICARIA [None]
